FAERS Safety Report 7504462-2 (Version None)
Quarter: 2011Q2

REPORT INFORMATION
  Report Type: 
  Country: None (occurrence: None)
  Receive Date: 20110525
  Receipt Date: 20100124
  Transmission Date: 20111010
  Serious: Yes (Death, Hospitalization, Other)
  Sender: FDA-Public Use
  Company Number: US-BAYER-201012049NA

PATIENT
  Age: 77 Year
  Sex: Male
  Weight: 57 kg

DRUGS (37)
  1. VITAMINS [Concomitant]
  2. NEOSYNEPHRINE [Concomitant]
     Dosage: UNK
     Route: 042
     Dates: start: 20030206
  3. NITROGLYCERIN [Concomitant]
     Dosage: UNK
     Route: 042
     Dates: start: 20030206, end: 20030208
  4. PROTAMINE SULFATE [Concomitant]
     Dosage: 400 MG, UNK
     Route: 042
     Dates: start: 20030206, end: 20030206
  5. PLATELETS [Concomitant]
     Dosage: 1 U, UNK
     Route: 042
     Dates: start: 20030206, end: 20030206
  6. TRASYLOL [Suspect]
     Indication: MITRAL VALVE REPLACEMENT
     Dosage: 1 ML, ONCE (INITIAL)
     Route: 042
     Dates: start: 20030206, end: 20030206
  7. TRASYLOL [Suspect]
     Dosage: 2 MILLION KIU (PUMP PRIME)
     Route: 042
     Dates: start: 20030206, end: 20030206
  8. LASIX [Concomitant]
     Dosage: UNK
     Route: 042
     Dates: start: 20030206, end: 20030206
  9. LOPRESSOR [Concomitant]
     Dosage: 50 MG, BID
     Route: 048
     Dates: start: 20030101
  10. SODIUM BICARBONATE [Concomitant]
  11. TRASYLOL [Suspect]
     Indication: CORONARY ARTERY BYPASS
     Dosage: 199 ML (LOADING DOSE)
     Route: 042
     Dates: start: 20030206, end: 20030206
  12. COUMADIN [Concomitant]
     Dosage: UNK
     Route: 048
     Dates: start: 20030101
  13. MIDAZOLAM HCL [Concomitant]
     Dosage: UNK
     Route: 042
     Dates: start: 20030206, end: 20030206
  14. POTASSIUM CHLORIDE [Concomitant]
     Dosage: UNK
     Route: 042
     Dates: start: 20030206, end: 20030206
  15. FENTANYL [Concomitant]
     Dosage: UNK
     Route: 042
     Dates: start: 20030206, end: 20030206
  16. PAVULON [Concomitant]
     Dosage: UNK
     Route: 042
     Dates: start: 20030206, end: 20030206
  17. EPINEPHRINE [Concomitant]
     Dosage: UNK
     Route: 042
     Dates: start: 20030206, end: 20030207
  18. SOLU-MEDROL [Concomitant]
     Dosage: UNK
     Route: 042
     Dates: start: 20030206, end: 20030206
  19. FRESH FROZEN PLASMA [Concomitant]
     Dosage: 2 U, UNK
     Route: 042
     Dates: start: 20030206, end: 20030206
  20. MORPHINE [Concomitant]
     Dosage: UNK
     Route: 042
     Dates: start: 20030206, end: 20030206
  21. AMIODARONE HCL [Concomitant]
     Dosage: UNK
     Route: 042
     Dates: start: 20030206, end: 20030210
  22. RED BLOOD CELLS [Concomitant]
     Dosage: 3 U, UNK
     Route: 042
     Dates: start: 20030206, end: 20030206
  23. TRASYLOL [Suspect]
     Indication: CARDIAC ABLATION
     Dosage: 50 ML/HR (INFUSION)
     Route: 042
     Dates: start: 20030206, end: 20030206
  24. CARDIZEM [Concomitant]
     Dosage: UNK
     Route: 042
     Dates: start: 20030101
  25. HEPARIN [Concomitant]
     Dosage: UNK
     Route: 042
     Dates: start: 20030101
  26. POTASSIUM CHLORIDE [Concomitant]
     Dosage: UNK
     Route: 048
     Dates: start: 20030101
  27. ASPIRIN [Concomitant]
     Dosage: 325 MG, QD
     Route: 048
     Dates: start: 20030101
  28. ISOFLURANE [Concomitant]
     Dosage: UNK, INHALED
     Route: 055
     Dates: start: 20030206, end: 20030206
  29. THIOPENTAL SODIUM [Concomitant]
     Dosage: 125 MG, UNK
     Route: 042
     Dates: start: 20030206, end: 20030206
  30. ANCEF [Concomitant]
     Dosage: 2 G, UNK
     Route: 042
     Dates: start: 20030206, end: 20030206
  31. LASIX [Concomitant]
     Dosage: UNK
     Route: 048
     Dates: start: 20030101
  32. HEPARIN [Concomitant]
     Dosage: 20000 U, UNK
     Route: 042
     Dates: start: 20030206, end: 20030206
  33. INAMRINONE [Concomitant]
     Dosage: UNK
     Route: 042
     Dates: start: 20030206, end: 20030206
  34. TRASYLOL [Suspect]
     Dosage: 250 ML  X4 (GIVEN INTRAOPERATIVELY)
     Route: 042
     Dates: start: 20030206, end: 20030206
  35. LASIX [Concomitant]
     Dosage: UNK
     Route: 042
     Dates: start: 20030101
  36. LANOXIN [Concomitant]
     Dosage: 0.125 MG, QD
     Route: 048
     Dates: start: 20030101
  37. CALCIUM CHLORIDE [Concomitant]
     Dosage: UNK
     Route: 042
     Dates: start: 20030206, end: 20030206

REACTIONS (14)
  - EMOTIONAL DISTRESS [None]
  - DEATH [None]
  - CEREBROVASCULAR ACCIDENT [None]
  - ANXIETY [None]
  - ANHEDONIA [None]
  - MULTI-ORGAN FAILURE [None]
  - FEAR [None]
  - PAIN [None]
  - INJURY [None]
  - STRESS [None]
  - RENAL INJURY [None]
  - RENAL FAILURE [None]
  - RENAL IMPAIRMENT [None]
  - UNEVALUABLE EVENT [None]
